FAERS Safety Report 7607303-8 (Version None)
Quarter: 2011Q3

REPORT INFORMATION
  Report Type: 
  Country: None (occurrence: None)
  Receive Date: 20110713
  Receipt Date: 20110701
  Transmission Date: 20111222
  Serious: Yes (Other)
  Sender: FDA-Public Use
  Company Number: PHHY2011BR37812

PATIENT
  Sex: Female

DRUGS (1)
  1. TEGRETOL [Suspect]
     Indication: CONVULSION
     Dosage: 2.5 ML, BID
     Route: 048

REACTIONS (6)
  - CONVULSION [None]
  - PHARYNGITIS [None]
  - PNEUMONIA [None]
  - PYREXIA [None]
  - INFECTION [None]
  - URINARY TRACT INFECTION [None]
